FAERS Safety Report 26128401 (Version 1)
Quarter: 2025Q4

REPORT INFORMATION
  Report Type: Spontaneous
  Country: CH (occurrence: CH)
  Receive Date: 20251207
  Receipt Date: 20251207
  Transmission Date: 20260118
  Serious: Yes (Hospitalization, Other)
  Sender: MERCK SHARP & DOHME LLC
  Company Number: CH-009507513-2356582

PATIENT
  Age: 32 Year
  Sex: Female

DRUGS (1)
  1. PEMBROLIZUMAB [Suspect]
     Active Substance: PEMBROLIZUMAB
     Indication: Malignant melanoma stage III
     Dates: start: 20190624, end: 20200625

REACTIONS (1)
  - Abortion late [Recovered/Resolved]

NARRATIVE: CASE EVENT DATE: 20250810
